APPROVED DRUG PRODUCT: HYDROCODONE BITARTRATE AND ACETAMINOPHEN
Active Ingredient: ACETAMINOPHEN; HYDROCODONE BITARTRATE
Strength: 325MG;5MG
Dosage Form/Route: TABLET;ORAL
Application: A210211 | Product #001 | TE Code: AA
Applicant: WES PHARMA INC
Approved: Oct 30, 2017 | RLD: No | RS: No | Type: RX